FAERS Safety Report 5657388-3 (Version None)
Quarter: 2008Q1

REPORT INFORMATION
  Report Type: 
  Country: None (occurrence: None)
  Receive Date: 20080310
  Receipt Date: 20080229
  Transmission Date: 20080703
  Serious: Yes (Other)
  Sender: FDA-Public Use
  Company Number: PHBS2008MY02482

PATIENT
  Sex: Female

DRUGS (2)
  1. GLEEVEC [Suspect]
     Indication: CHRONIC MYELOID LEUKAEMIA
     Dosage: 600 MG/DAY
  2. HYPER-CVAD [Concomitant]

REACTIONS (3)
  - ENDOPHTHALMITIS [None]
  - OCULAR HYPERAEMIA [None]
  - UVEITIS [None]
